FAERS Safety Report 26044178 (Version 1)
Quarter: 2025Q4

REPORT INFORMATION
  Report Type: Spontaneous
  Country: US (occurrence: US)
  Receive Date: 20251114
  Receipt Date: 20251114
  Transmission Date: 20260118
  Serious: Yes (Hospitalization, Other)
  Sender: EXELIXIS
  Company Number: US-EXELIXIS-EXL-2025-013135

PATIENT
  Age: 51 Year
  Sex: Male
  Weight: 99.77 kg

DRUGS (3)
  1. CABOMETYX [Suspect]
     Active Substance: CABOZANTINIB S-MALATE
     Indication: Product used for unknown indication
     Dosage: 40 MG
  2. CABOMETYX [Suspect]
     Active Substance: CABOZANTINIB S-MALATE
     Dosage: 60 MG, QD
  3. XERMELO [Suspect]
     Active Substance: TELOTRISTAT ETHYL
     Indication: Carcinoid syndrome
     Dosage: 250 MG, TID
     Route: 048
     Dates: start: 20250212

REACTIONS (7)
  - Therapeutic procedure [Unknown]
  - Pulmonary embolism [Unknown]
  - Surgery [Unknown]
  - Full blood count abnormal [Unknown]
  - Diarrhoea [Unknown]
  - Procedural pain [Unknown]
  - Product dose omission issue [Unknown]
